FAERS Safety Report 9408506 (Version 1)
Quarter: 2013Q3

REPORT INFORMATION
  Report Type: Spontaneous
  Country: US (occurrence: US)
  Receive Date: 20130718
  Receipt Date: 20130718
  Transmission Date: 20140515
  Serious: No
  Sender: FDA-Public Use
  Company Number: US-ASTELLAS-2013US005551

PATIENT
  Sex: Female
  Weight: 48 kg

DRUGS (2)
  1. VESICARE [Suspect]
     Indication: HYPERTONIC BLADDER
     Dosage: 10 MG, UID/QD
     Route: 048
  2. LEVOTIROXINA [Concomitant]
     Indication: THYROID DISORDER
     Dosage: 88 MG, UID/QD
     Route: 048
     Dates: start: 2008

REACTIONS (2)
  - Drug ineffective [Unknown]
  - Nocturia [Unknown]
